FAERS Safety Report 23907321 (Version 1)
Quarter: 2024Q2

REPORT INFORMATION
  Report Type: Spontaneous
  Country: IT (occurrence: None)
  Receive Date: 20240528
  Receipt Date: 20240528
  Transmission Date: 20240715
  Serious: Yes (Hospitalization)
  Sender: FDA-Public Use
  Company Number: IT-ROCHE-3568712

PATIENT
  Age: 48 Year
  Sex: Female

DRUGS (1)
  1. OCREVUS [Suspect]
     Active Substance: OCRELIZUMAB
     Indication: Product used for unknown indication
     Route: 065

REACTIONS (15)
  - Cutaneous sarcoidosis [Unknown]
  - Osteolysis [Unknown]
  - COVID-19 pneumonia [Unknown]
  - Lichen planus [Unknown]
  - Osteoporosis [Unknown]
  - Polyarthritis [Unknown]
  - Cyst [Unknown]
  - Influenza [Unknown]
  - Pyrexia [Unknown]
  - Cough [Unknown]
  - Headache [Unknown]
  - Photophobia [Unknown]
  - Meningitis aseptic [Unknown]
  - Migraine [Unknown]
  - SARS-CoV-2 test positive [Unknown]

NARRATIVE: CASE EVENT DATE: 20180101
